FAERS Safety Report 23900522 (Version 1)
Quarter: 2024Q2

REPORT INFORMATION
  Report Type: Spontaneous
  Country: US (occurrence: None)
  Receive Date: 20240526
  Receipt Date: 20240526
  Transmission Date: 20240716
  Serious: No
  Sender: FDA-Public Use
  Company Number: US-ROCHE-3443812

PATIENT
  Age: 48 Year
  Sex: Female
  Weight: 52.21 kg

DRUGS (2)
  1. OCREVUS [Suspect]
     Active Substance: OCRELIZUMAB
     Indication: Secondary progressive multiple sclerosis
     Dosage: NO
     Route: 042
  2. OCREVUS [Suspect]
     Active Substance: OCRELIZUMAB
     Dosage: LAST ADMINISTERED: 06-OCT-2023.
     Route: 042

REACTIONS (2)
  - Off label use [Unknown]
  - Pruritus [Recovered/Resolved]
